FAERS Safety Report 12530822 (Version 1)
Quarter: 2016Q3

REPORT INFORMATION
  Report Type: Spontaneous
  Country: JP (occurrence: JP)
  Receive Date: 20160706
  Receipt Date: 20160706
  Transmission Date: 20161109
  Serious: Yes (Death)
  Sender: FDA-Public Use
  Company Number: JP-SA-2016SA123523

PATIENT
  Age: 67 Year
  Sex: Female

DRUGS (1)
  1. RASURITEK [Suspect]
     Active Substance: RASBURICASE
     Indication: HYPERURICAEMIA
     Route: 042

REACTIONS (1)
  - Arrhythmia [Fatal]
